FAERS Safety Report 18241774 (Version 1)
Quarter: 2020Q3

REPORT INFORMATION
  Report Type: Spontaneous
  Country: US (occurrence: US)
  Receive Date: 20200907
  Receipt Date: 20200907
  Transmission Date: 20201103
  Serious: No
  Sender: FDA-Public Use
  Company Number: None

PATIENT
  Age: 42 Year
  Sex: Female
  Weight: 70.2 kg

DRUGS (6)
  1. ZYRTEC [Concomitant]
     Active Substance: CETIRIZINE HYDROCHLORIDE
  2. ALLEGRA [Concomitant]
     Active Substance: FEXOFENADINE HYDROCHLORIDE
  3. OLMASARTEN [Concomitant]
  4. VASCEPA [Concomitant]
     Active Substance: ICOSAPENT ETHYL
  5. SUDAFED [Concomitant]
     Active Substance: PSEUDOEPHEDRINE HYDROCHLORIDE
  6. XYZAL [Suspect]
     Active Substance: LEVOCETIRIZINE DIHYDROCHLORIDE
     Indication: MULTIPLE ALLERGIES
     Dosage: QUANTITY:1 CAPSULE(S);?
     Dates: start: 20170327, end: 20170330

REACTIONS (4)
  - Suicide attempt [None]
  - Anxiety [None]
  - Suicidal ideation [None]
  - Agitation [None]

NARRATIVE: CASE EVENT DATE: 20170327
